FAERS Safety Report 22287849 (Version 2)
Quarter: 2023Q2

REPORT INFORMATION
  Report Type: Report from Study
  Country: US (occurrence: US)
  Receive Date: 20230505
  Receipt Date: 20230508
  Transmission Date: 20230721
  Serious: Yes (Other)
  Sender: FDA-Public Use
  Company Number: US-ABBVIE-4751342

PATIENT
  Age: 77 Year
  Sex: Female

DRUGS (7)
  1. VENCLEXTA [Suspect]
     Active Substance: VENETOCLAX
     Indication: Chronic lymphocytic leukaemia
     Dosage: TAKE 20MG(2X10MG TABS) BY MOUTH EVERY DAY ON WEEK 1 STARTING PACK
     Route: 048
     Dates: start: 20220420
  2. VENCLEXTA [Suspect]
     Active Substance: VENETOCLAX
     Indication: Chronic lymphocytic leukaemia
     Dosage: TAKE 2 TABLET(S) DAILY  AT THE SAME TIME EVERY DAY WITH  FOOD AND GLASS OF WATER. NO CRUSH OR CHEW
     Route: 048
  3. VENCLEXTA [Suspect]
     Active Substance: VENETOCLAX
     Indication: Chronic lymphocytic leukaemia
     Dosage: TAKE 3 TABLET(S) EVERY DAY WITH FOOD,WATER AT SAME TIME EACH  DAY (DO NOT CRUSH OR CHEW TABLETS)
     Route: 048
  4. VENCLEXTA [Suspect]
     Active Substance: VENETOCLAX
     Indication: Chronic lymphocytic leukaemia
     Dosage: THEN, 200MG(2X100MG TABS) DAILY WEEK 4.
     Route: 048
  5. VENCLEXTA [Suspect]
     Active Substance: VENETOCLAX
     Indication: Chronic lymphocytic leukaemia
     Dosage: 400 MG EVERY DAY WITH  FOOD AND A GLASS OF WATER - NOT TO BE CRUSH OR CHEW TABLETS
     Route: 048
     Dates: start: 20220613
  6. VENCLEXTA [Suspect]
     Active Substance: VENETOCLAX
     Indication: Chronic lymphocytic leukaemia
     Dosage: THEN, 50MG(1X50MG TAB) DAILY BY MOUTH WEEK 2.
     Route: 048
  7. VENCLEXTA [Suspect]
     Active Substance: VENETOCLAX
     Indication: Chronic lymphocytic leukaemia
     Dosage: THEN, 100MG(1X100MG TAB) BY MOUTH DAILY WEEK 3
     Route: 048

REACTIONS (1)
  - Skin graft removal [Unknown]

NARRATIVE: CASE EVENT DATE: 20230316
